FAERS Safety Report 9542732 (Version 1)
Quarter: 2013Q3

REPORT INFORMATION
  Report Type: Spontaneous
  Country: US (occurrence: US)
  Receive Date: 20130923
  Receipt Date: 20130923
  Transmission Date: 20140515
  Serious: Yes (Other)
  Sender: FDA-Public Use
  Company Number: US-PFIZER INC-2013271860

PATIENT
  Age: 75 Year
  Sex: Female
  Weight: 74.38 kg

DRUGS (3)
  1. CELEBREX [Suspect]
     Indication: BACK PAIN
     Dosage: UNK
  2. COUMADINE [Concomitant]
     Indication: THROMBOSIS
     Dosage: 5MG DAILY
  3. CELEXA [Concomitant]
     Indication: DEPRESSION
     Dosage: UNK

REACTIONS (2)
  - Back pain [Unknown]
  - Urticaria [Unknown]
